FAERS Safety Report 4643826-1 (Version None)
Quarter: 2005Q2

REPORT INFORMATION
  Report Type: 
  Country: None (occurrence: None)
  Receive Date: 20050425
  Receipt Date: 20050420
  Transmission Date: 20051028
  Serious: Yes (Other)
  Sender: FDA-Public Use
  Company Number: ES-MERCK-0504ESP00034

PATIENT
  Age: 4 Month
  Sex: Male

DRUGS (1)
  1. SINGULAIR [Suspect]
     Indication: BRONCHIOLITIS
     Route: 048
     Dates: start: 20050221, end: 20050225

REACTIONS (1)
  - INTRACRANIAL PRESSURE INCREASED [None]
